FAERS Safety Report 13659377 (Version 1)
Quarter: 2017Q2

REPORT INFORMATION
  Report Type: Spontaneous
  Country: US (occurrence: US)
  Receive Date: 20170616
  Receipt Date: 20170616
  Transmission Date: 20170830
  Serious: Yes (Hospitalization)
  Sender: FDA-Public Use
  Company Number: None

PATIENT
  Age: 72 Year
  Sex: Male
  Weight: 100.4 kg

DRUGS (13)
  1. THERAGRAN [Concomitant]
     Active Substance: VITAMINS
  2. OXYCONTIN [Suspect]
     Active Substance: OXYCODONE HYDROCHLORIDE
     Indication: PAIN
     Dosage: DATES OF USE - CHRONIC
     Route: 048
  3. VYTORIN [Concomitant]
     Active Substance: EZETIMIBE\SIMVASTATIN
  4. PERCOCET [Suspect]
     Active Substance: ACETAMINOPHEN\OXYCODONE HYDROCHLORIDE
     Dosage: DATES OF USE - CHRONIC?FREQUENCY - PRN DAILY
     Route: 048
  5. ADVAIR HFA [Concomitant]
     Active Substance: FLUTICASONE PROPIONATE\SALMETEROL XINAFOATE
  6. GLUCOPHAGE [Concomitant]
     Active Substance: METFORMIN HYDROCHLORIDE
  7. PRILOSEC [Concomitant]
     Active Substance: OMEPRAZOLE MAGNESIUM
  8. DIAZEPAM. [Suspect]
     Active Substance: DIAZEPAM
  9. GLUCOS-CHRONDROIT [Concomitant]
  10. OMEGA 3 [Concomitant]
     Active Substance: OMEGA-3 FATTY ACIDS
  11. DALIRESP [Concomitant]
     Active Substance: ROFLUMILAST
  12. SPIRIVA [Concomitant]
     Active Substance: TIOTROPIUM BROMIDE MONOHYDRATE
  13. COLACE [Concomitant]
     Active Substance: DOCUSATE SODIUM

REACTIONS (6)
  - Confusional state [None]
  - Hallucination [None]
  - Treatment noncompliance [None]
  - Chronic obstructive pulmonary disease [None]
  - Respiratory failure [None]
  - Agitation [None]

NARRATIVE: CASE EVENT DATE: 20170424
